FAERS Safety Report 9958703 (Version 1)
Quarter: 2014Q1

REPORT INFORMATION
  Report Type: Spontaneous
  Country: US (occurrence: None)
  Receive Date: 20140228
  Receipt Date: 20140228
  Transmission Date: 20141002
  Serious: Yes (Death)
  Sender: FDA-Public Use
  Company Number: None

PATIENT
  Age: 46 Year
  Sex: Male
  Weight: 113 kg

DRUGS (3)
  1. BLEOMYCIN [Suspect]
  2. ETOPOSIDE [Suspect]
  3. CISPLATIN [Suspect]

REACTIONS (3)
  - Lung disorder [None]
  - Toxicity to various agents [None]
  - General physical health deterioration [None]
